FAERS Safety Report 23628836 (Version 3)
Quarter: 2025Q4

REPORT INFORMATION
  Report Type: Spontaneous
  Country: EU (occurrence: EU)
  Receive Date: 20240313
  Receipt Date: 20251026
  Transmission Date: 20260119
  Serious: Yes (Other)
  Sender: ELI LILLY AND COMPANY
  Company Number: None

PATIENT
  Age: 33 Year
  Sex: Female

DRUGS (4)
  1. TALTZ [Suspect]
     Active Substance: IXEKIZUMAB
     Indication: Spondylitis
     Dosage: UNK UNK, UNKNOWN
     Route: 058
     Dates: start: 20231223, end: 20240120
  2. TALTZ [Suspect]
     Active Substance: IXEKIZUMAB
     Dosage: UNK UNK, UNKNOWN
     Route: 058
     Dates: start: 20241223
  3. LYRICA [Concomitant]
     Active Substance: PREGABALIN
     Indication: Spondylitis
     Dosage: 25 MG, DAILY
     Route: 048
  4. PREDNISONE [Concomitant]
     Active Substance: PREDNISONE
     Indication: Spondylitis
     Dosage: 2.5 MG, WEEKLY (1/W)
     Route: 048

REACTIONS (4)
  - Heavy menstrual bleeding [Recovered/Resolved]
  - Hirsutism [Recovered/Resolved]
  - Hirsutism [Recovered/Resolved]
  - Heavy menstrual bleeding [Recovered/Resolved]

NARRATIVE: CASE EVENT DATE: 20240101
